FAERS Safety Report 21739680 (Version 2)
Quarter: 2022Q4

REPORT INFORMATION
  Report Type: Spontaneous
  Country: US (occurrence: US)
  Receive Date: 20221216
  Receipt Date: 20221221
  Transmission Date: 20230113
  Serious: No
  Sender: FDA-Public Use
  Company Number: US-002147023-NVSC2022US289711

PATIENT
  Age: 61 Year
  Sex: Male

DRUGS (1)
  1. LEQVIO [Suspect]
     Active Substance: INCLISIRAN SODIUM
     Indication: Low density lipoprotein increased
     Dosage: 284 MG (INITIAL DOSE, ANOTHER AT 3 MONTHS, THEN EVERY 6 MONTHS)
     Route: 058
     Dates: start: 20221213, end: 20221213

REACTIONS (2)
  - Muscle spasms [Unknown]
  - Injection site pain [Unknown]

NARRATIVE: CASE EVENT DATE: 20221213
